FAERS Safety Report 15012873 (Version 1)
Quarter: 2018Q2

REPORT INFORMATION
  Report Type: Report from Study
  Country: US (occurrence: US)
  Receive Date: 20180614
  Receipt Date: 20180614
  Transmission Date: 20180711
  Serious: Yes (Hospitalization)
  Sender: FDA-Public Use
  Company Number: PHEH2018US022620

PATIENT
  Age: 68 Year
  Sex: Male

DRUGS (1)
  1. ENTRESTO [Suspect]
     Active Substance: SACUBITRIL\VALSARTAN
     Indication: CARDIAC FAILURE CONGESTIVE
     Dosage: 1DF (49 SACUBITRIL /51 VALSARTAN) BID
     Route: 048
     Dates: start: 20170701, end: 20170916

REACTIONS (3)
  - Blood potassium increased [Unknown]
  - Asthenia [Unknown]
  - Coma [Unknown]

NARRATIVE: CASE EVENT DATE: 20170916
